FAERS Safety Report 9663204 (Version 1)
Quarter: 2013Q4

REPORT INFORMATION
  Report Type: Spontaneous
  Country: US (occurrence: US)
  Receive Date: 20131101
  Receipt Date: 20131101
  Transmission Date: 20140711
  Serious: Yes (Other)
  Sender: FDA-Public Use
  Company Number: US-BIOGENIDEC-2013BI102949

PATIENT
  Sex: 0

DRUGS (1)
  1. AVONEX [Suspect]
     Indication: EXPOSURE VIA FATHER

REACTIONS (1)
  - Pulmonary oedema neonatal [Recovered/Resolved]
